FAERS Safety Report 6241952-7 (Version None)
Quarter: 2009Q2

REPORT INFORMATION
  Report Type: 
  Country: None (occurrence: None)
  Receive Date: 20090622
  Receipt Date: 20090604
  Transmission Date: 20091009
  Serious: Yes (Death, Hospitalization)
  Sender: FDA-Public Use
  Company Number: 2008AL011091

PATIENT
  Age: 73 Year
  Sex: Male

DRUGS (18)
  1. DIGOXIN [Suspect]
     Indication: ATRIAL FIBRILLATION
     Dosage: 0.125MG, DAILY, PO
     Route: 048
  2. DIGOXIN [Suspect]
     Indication: CARDIAC FAILURE CONGESTIVE
     Dosage: 0.125MG, DAILY, PO
     Route: 048
  3. MIRAPEX [Concomitant]
  4. POTASSIUM CHLORIDE [Concomitant]
  5. LASIX [Concomitant]
  6. SYNTHROID [Concomitant]
  7. PREDNISONE TAB [Concomitant]
  8. PERCOCET [Concomitant]
  9. COUMADIN [Concomitant]
  10. SPIRIVA [Concomitant]
  11. ADVAIR HFA [Concomitant]
  12. COMBIVENT [Concomitant]
  13. TYLENOL (CAPLET) [Concomitant]
  14. ALBUTEROL [Concomitant]
  15. DILTIAZEM [Concomitant]
  16. ATROVENT [Concomitant]
  17. NASONEX [Concomitant]
  18. BACTRIM [Concomitant]

REACTIONS (21)
  - ABDOMINAL PAIN [None]
  - AGITATION [None]
  - ANHEDONIA [None]
  - ANXIETY [None]
  - ARRHYTHMIA [None]
  - ATRIAL FIBRILLATION [None]
  - CARDIAC ARREST [None]
  - CHRONIC OBSTRUCTIVE PULMONARY DISEASE [None]
  - CONDITION AGGRAVATED [None]
  - DYSPHAGIA [None]
  - ECONOMIC PROBLEM [None]
  - FAILURE TO THRIVE [None]
  - FATIGUE [None]
  - HAEMORRHAGE [None]
  - INFECTION [None]
  - INJURY [None]
  - NAUSEA [None]
  - PAIN [None]
  - RESPIRATORY FAILURE [None]
  - THERAPEUTIC AGENT TOXICITY [None]
  - VOMITING [None]
